FAERS Safety Report 5961328-7 (Version None)
Quarter: 2008Q4

REPORT INFORMATION
  Report Type: 
  Country: None (occurrence: None)
  Receive Date: 20081119
  Receipt Date: 20081104
  Transmission Date: 20090506
  Serious: Yes (Hospitalization, Other)
  Sender: FDA-Public Use
  Company Number: 2008US002017

PATIENT
  Age: 68 Year
  Sex: Female
  Weight: 88.4 kg

DRUGS (1)
  1. AMEVIVE [Suspect]
     Indication: PSORIASIS
     Dosage: 15 MG, WEEKLY, INTRAMUSCULAR
     Route: 030
     Dates: start: 20051121, end: 20060307

REACTIONS (6)
  - COLLAPSE OF LUNG [None]
  - COUGH [None]
  - DYSPNOEA [None]
  - FOLLICLE CENTRE LYMPHOMA, FOLLICULAR GRADE I, II, III STAGE II [None]
  - LYMPHADENOPATHY [None]
  - ULCER HAEMORRHAGE [None]
